FAERS Safety Report 8269947-2 (Version None)
Quarter: 2012Q2

REPORT INFORMATION
  Report Type: 
  Country: None (occurrence: None)
  Receive Date: 20120410
  Receipt Date: 20120405
  Transmission Date: 20120825
  Serious: No
  Sender: FDA-Public Use
  Company Number: US-PFIZER INC-2012086752

PATIENT
  Sex: Female
  Weight: 64.399 kg

DRUGS (4)
  1. PREMARIN [Suspect]
     Indication: MENSTRUAL DISORDER
  2. PROVERA [Suspect]
     Indication: ENDOMETRIOSIS
     Dosage: 2.5 MG, DAILY
     Dates: start: 19890101, end: 20050101
  3. PREMARIN [Suspect]
     Indication: ENDOMETRIOSIS
     Dosage: 0.625 MG, DAILY
     Dates: start: 19890101, end: 20050101
  4. PROVERA [Suspect]
     Indication: MENSTRUAL DISORDER

REACTIONS (2)
  - HOT FLUSH [None]
  - INSOMNIA [None]
